FAERS Safety Report 5286279-5 (Version None)
Quarter: 2007Q1

REPORT INFORMATION
  Report Type: 
  Country: None (occurrence: None)
  Receive Date: 20070116
  Receipt Date: 20061208
  Transmission Date: 20070707
  Serious: No
  Sender: FDA-Public Use
  Company Number: 2006SP004338

PATIENT
  Age: 82 Year
  Sex: Male
  Weight: 83.9154 kg

DRUGS (5)
  1. LUNESTA [Suspect]
     Indication: INSOMNIA
     Dosage: 3 MG;HS;ORAL
     Route: 048
     Dates: start: 20061101, end: 20061101
  2. CLONAZEPAM [Concomitant]
  3. TAMSULOSIN HCL [Concomitant]
  4. CYMBALTA [Concomitant]
  5. AMBIEN [Concomitant]

REACTIONS (3)
  - MALAISE [None]
  - NIGHTMARE [None]
  - TACHYCARDIA [None]
